FAERS Safety Report 18990521 (Version 1)
Quarter: 2021Q1

REPORT INFORMATION
  Report Type: Report from Study
  Country: HU (occurrence: HU)
  Receive Date: 20210310
  Receipt Date: 20210310
  Transmission Date: 20210420
  Serious: Yes (Other)
  Sender: FDA-Public Use
  Company Number: PHHY2016HU070028

PATIENT
  Age: 48 Year
  Sex: Female
  Weight: 69 kg

DRUGS (1)
  1. GILENYA [Suspect]
     Active Substance: FINGOLIMOD HYDROCHLORIDE
     Indication: MULTIPLE SCLEROSIS
     Dosage: 0.5 MG, QD
     Route: 048
     Dates: start: 20141203, end: 20160210

REACTIONS (3)
  - Lymphocyte count decreased [Recovered/Resolved]
  - Multiple sclerosis relapse [Recovering/Resolving]
  - Liver function test increased [Recovered/Resolved]

NARRATIVE: CASE EVENT DATE: 201509
